FAERS Safety Report 6599519-7 (Version None)
Quarter: 2010Q1

REPORT INFORMATION
  Report Type: 
  Country: None (occurrence: None)
  Receive Date: 20100217
  Receipt Date: 20100208
  Transmission Date: 20100710
  Serious: Yes (Other)
  Sender: FDA-Public Use
  Company Number: DSA_42429_2010

PATIENT
  Sex: Female

DRUGS (6)
  1. XENAZINE [Suspect]
     Indication: TARDIVE DYSKINESIA
     Dosage: (12.5 MG QD ORAL) ; (25 MG QD ORAL) ; (12.5 MG BID ORAL)
     Route: 048
     Dates: start: 20100101, end: 20100101
  2. XENAZINE [Suspect]
     Indication: TARDIVE DYSKINESIA
     Dosage: (12.5 MG QD ORAL) ; (25 MG QD ORAL) ; (12.5 MG BID ORAL)
     Route: 048
     Dates: start: 20100101
  3. ADDERALL 30 [Concomitant]
  4. LIPITOR [Concomitant]
  5. PAMELOR [Concomitant]
  6. RELPAX [Concomitant]

REACTIONS (6)
  - DEHYDRATION [None]
  - FALL [None]
  - GASTROINTESTINAL DISORDER [None]
  - LOSS OF CONSCIOUSNESS [None]
  - NAUSEA [None]
  - VOMITING [None]
